FAERS Safety Report 23959462 (Version 1)
Quarter: 2024Q2

REPORT INFORMATION
  Report Type: Spontaneous
  Country: US (occurrence: US)
  Receive Date: 20240611
  Receipt Date: 20240611
  Transmission Date: 20240716
  Serious: Yes (Other)
  Sender: FDA-Public Use
  Company Number: US-JNJFOC-20240609237

PATIENT
  Sex: Female

DRUGS (2)
  1. XARELTO [Suspect]
     Active Substance: RIVAROXABAN
     Indication: Superficial vein thrombosis
     Route: 048
  2. XARELTO [Suspect]
     Active Substance: RIVAROXABAN
     Indication: Deep vein thrombosis
     Route: 048
     Dates: start: 20240430

REACTIONS (3)
  - Deep vein thrombosis [Not Recovered/Not Resolved]
  - Postmenopausal haemorrhage [Unknown]
  - Ankle fracture [Unknown]

NARRATIVE: CASE EVENT DATE: 20240401
